FAERS Safety Report 8503563 (Version 4)
Quarter: 2012Q4

REPORT INFORMATION
  Report Type: Report from Study
  Country: BD (occurrence: BD)
  Receive Date: 20120411
  Receipt Date: 20120828
  Transmission Date: 20130627
  Serious: Yes (Hospitalization, Disabling, Other)
  Sender: FDA-Public Use
  Company Number: BD-ASTELLAS-2012US003484

PATIENT
  Age: 24 Year
  Sex: Female
  Weight: 40 kg

DRUGS (4)
  1. AMBISOME [Suspect]
     Indication: VISCERAL LEISHMANIASIS
     Dosage: 3 mg/kg, Unknown/D
     Route: 065
     Dates: start: 20110803
  2. AMBISOME [Suspect]
     Dosage: UNK
     Route: 065
  3. PARACETAMOL [Concomitant]
     Indication: PRODUCT USED FOR UNKNOWN INDICATION
     Dosage: UNK
     Route: 065
     Dates: start: 20110803, end: 20110826
  4. FERROUS SULFATE W/FOLIC ACID [Concomitant]
     Indication: PRODUCT USED FOR UNKNOWN INDICATION
     Dosage: UNK
     Route: 065
     Dates: start: 20110803, end: 20110903

REACTIONS (3)
  - Premature delivery [Unknown]
  - Myalgia [Recovered/Resolved]
  - Asthenia [Not Recovered/Not Resolved]
